FAERS Safety Report 9949424 (Version 2)
Quarter: 2014Q1

REPORT INFORMATION
  Report Type: Spontaneous
  Country: US (occurrence: US)
  Receive Date: 20140304
  Receipt Date: 20140327
  Transmission Date: 20141002
  Serious: No
  Sender: FDA-Public Use
  Company Number: US-009507513-1403USA000260

PATIENT
  Age: 64 Year
  Sex: Female
  Weight: 77.98 kg

DRUGS (5)
  1. JANUMET [Suspect]
     Indication: TYPE 2 DIABETES MELLITUS
     Dosage: 50/500MG, QD
     Route: 048
     Dates: start: 2011
  2. JANUMET [Suspect]
     Indication: TYPE 2 DIABETES MELLITUS
     Dosage: 50/1000MG, QD
     Route: 048
  3. JANUMET [Suspect]
     Dosage: 50/1000 MG, BID
     Route: 048
  4. LISINOPRIL [Concomitant]
  5. GLIMEPIRIDE [Concomitant]

REACTIONS (7)
  - Aphagia [Recovering/Resolving]
  - Gastric disorder [Recovering/Resolving]
  - Blood glucose increased [Recovering/Resolving]
  - Malaise [Recovering/Resolving]
  - Inappropriate schedule of drug administration [Unknown]
  - Nausea [Recovered/Resolved]
  - Diarrhoea [Recovered/Resolved]
